FAERS Safety Report 16568716 (Version 2)
Quarter: 2019Q3

REPORT INFORMATION
  Report Type: Spontaneous
  Country: ES (occurrence: ES)
  Receive Date: 20190713
  Receipt Date: 20190716
  Transmission Date: 20191004
  Serious: Yes (Other)
  Sender: FDA-Public Use
  Company Number: ES-JNJFOC-20190307439

PATIENT
  Age: 53 Year
  Sex: Male

DRUGS (16)
  1. IBUPROFEN. [Suspect]
     Active Substance: IBUPROFEN
     Route: 065
  2. DICLOFENAC [Suspect]
     Active Substance: DICLOFENAC
     Indication: DRUG PROVOCATION TEST
     Route: 065
  3. IBUPROFEN. [Suspect]
     Active Substance: IBUPROFEN
     Indication: DRUG PROVOCATION TEST
     Route: 065
  4. IBUPROFEN. [Suspect]
     Active Substance: IBUPROFEN
     Route: 065
  5. IBUPROFEN. [Suspect]
     Active Substance: IBUPROFEN
     Route: 065
  6. DIPYRONE [Suspect]
     Active Substance: DIPYRONE
     Indication: DRUG PROVOCATION TEST
     Dosage: DURING SECOND DAY
     Route: 065
  7. IBUPROFEN. [Suspect]
     Active Substance: IBUPROFEN
     Indication: PRODUCT USED FOR UNKNOWN INDICATION
     Route: 065
  8. DICLOFENAC [Suspect]
     Active Substance: DICLOFENAC
     Route: 065
  9. DIPYRONE [Suspect]
     Active Substance: DIPYRONE
     Dosage: ON THE THIRD DAY
     Route: 065
  10. DIPYRONE [Suspect]
     Active Substance: DIPYRONE
     Dosage: DURING SECOND DAY
     Route: 065
  11. DIPYRONE [Suspect]
     Active Substance: DIPYRONE
     Dosage: ON THE THIRD DAY
     Route: 065
  12. IBUPROFEN. [Suspect]
     Active Substance: IBUPROFEN
     Route: 065
  13. ASPIRIN. [Suspect]
     Active Substance: ASPIRIN
     Indication: DRUG PROVOCATION TEST
     Dosage: TWO DOSES WERE ADMINISTERED ORALLY WITH AN INTERVAL OF 180 MINUTES (50 AND 100 MG) ON THE 2ND DAY. I
     Route: 065
  14. DIPYRONE [Suspect]
     Active Substance: DIPYRONE
     Dosage: DURING SECOND DAY
     Route: 065
  15. DICLOFENAC [Suspect]
     Active Substance: DICLOFENAC
     Indication: PRODUCT USED FOR UNKNOWN INDICATION
     Route: 065
  16. DIPYRONE [Suspect]
     Active Substance: DIPYRONE
     Dosage: ON THE THIRD DAY
     Route: 065

REACTIONS (4)
  - Angioedema [Unknown]
  - Product use in unapproved indication [Unknown]
  - Urticaria [Unknown]
  - Off label use [Unknown]
